FAERS Safety Report 6558556-9 (Version None)
Quarter: 2010Q1

REPORT INFORMATION
  Report Type: 
  Country: None (occurrence: None)
  Receive Date: 20100129
  Receipt Date: 20100121
  Transmission Date: 20100710
  Serious: Yes (Life-Threatening)
  Sender: FDA-Public Use
  Company Number: DK-WYE-H13254010

PATIENT
  Sex: Female

DRUGS (10)
  1. CORDARONE [Suspect]
     Indication: ATRIAL FIBRILLATION
     Route: 048
     Dates: start: 20100113, end: 20100117
  2. MAREVAN [Concomitant]
     Dosage: DOSE UNKNOWN
     Route: 065
  3. FURIX [Concomitant]
     Dosage: DOSE UNKNOWN
     Route: 065
  4. ACETAMINOPHEN [Concomitant]
     Dosage: DOSE UNKNOWN
     Route: 065
  5. SPIRON [Concomitant]
     Dosage: DOSE UNKNOWN
     Route: 065
  6. SELO-ZOK [Concomitant]
     Dosage: DOSE UNKNOWN
     Route: 065
  7. ATACAND [Concomitant]
     Dosage: DOSE UNKNOWN
     Route: 065
  8. ELTROXIN [Concomitant]
     Dosage: DOSE UNKNOWN
     Route: 065
  9. KALEORID [Concomitant]
     Dosage: DOSE UNKNOWN
     Route: 065
  10. DIGOXIN [Concomitant]
     Dosage: DOSE UNKNOWN
     Route: 065

REACTIONS (5)
  - CARDIAC ARREST [None]
  - CEREBROVASCULAR ACCIDENT [None]
  - ELECTROCARDIOGRAM QT PROLONGED [None]
  - TORSADE DE POINTES [None]
  - VENTRICULAR TACHYCARDIA [None]
